FAERS Safety Report 8082220 (Version 2)
Quarter: 2012Q4

REPORT INFORMATION
  Report Type: Report from Study
  Country: US (occurrence: US)
  Receive Date: 20110809
  Receipt Date: 20120919
  Transmission Date: 20130627
  Serious: Yes (Other)
  Sender: FDA-Public Use
  Company Number: US-PFIZER INC-2011180119

PATIENT
  Age: 47 Year
  Sex: Female
  Weight: 74.83 kg

DRUGS (7)
  1. ZOLOFT [Suspect]
     Indication: DEPRESSION
     Dosage: 100 mg, 1x/day
     Route: 048
     Dates: start: 199412
  2. NEURONTIN [Suspect]
     Indication: RESTLESS LEGS SYNDROME
     Dosage: 1200 mg, 1x/day
     Route: 048
     Dates: start: 2008, end: 2012
  3. LIPITOR [Suspect]
     Indication: BLOOD CHOLESTEROL INCREASED
     Dosage: 10 mg, 1x/day
     Route: 048
     Dates: start: 2011
  4. ZANTAC [Concomitant]
     Indication: GASTRIC DISORDER
     Dosage: UNK
  5. TOPROL XL [Concomitant]
     Indication: HYPERTENSION
     Dosage: 50 mg, daily
  6. TRAMADOL [Concomitant]
     Indication: HEADACHE
     Dosage: UNK
  7. ASPIRIN [Concomitant]
     Indication: ANTICOAGULANT THERAPY
     Dosage: 81 mg, UNK

REACTIONS (2)
  - Cerebrovascular accident [Unknown]
  - Pain in extremity [Unknown]
